FAERS Safety Report 21013345 (Version 3)
Quarter: 2022Q3

REPORT INFORMATION
  Report Type: Spontaneous
  Country: US (occurrence: US)
  Receive Date: 20220627
  Receipt Date: 20220730
  Transmission Date: 20221026
  Serious: Yes (Other)
  Sender: FDA-Public Use
  Company Number: US-SA-SAC20220620001524

PATIENT
  Age: 62 Year
  Sex: Female
  Weight: 59.41 kg

DRUGS (2)
  1. DUPIXENT [Suspect]
     Active Substance: DUPILUMAB
     Indication: Dermatitis atopic
     Dosage: 300 MG, QOW
     Route: 058
     Dates: start: 202204
  2. DUPIXENT [Suspect]
     Active Substance: DUPILUMAB
     Indication: Dermatitis atopic
     Dosage: 300 MG, QOW
     Route: 058
     Dates: start: 20220411

REACTIONS (7)
  - Bronchial obstruction [Unknown]
  - Bronchial secretion retention [Unknown]
  - Dyspnoea [Recovered/Resolved]
  - Condition aggravated [Recovered/Resolved]
  - Sinusitis [Not Recovered/Not Resolved]
  - Oxygen saturation decreased [Recovered/Resolved]
  - Dermatitis atopic [Not Recovered/Not Resolved]

NARRATIVE: CASE EVENT DATE: 20220101
